FAERS Safety Report 7167141-X (Version None)
Quarter: 2010Q4

REPORT INFORMATION
  Report Type: 
  Country: None (occurrence: None)
  Receive Date: 20101216
  Receipt Date: 20101209
  Transmission Date: 20110411
  Serious: Yes (Hospitalization, Other)
  Sender: FDA-Public Use
  Company Number: US-ALEXION-A201001587

PATIENT
  Sex: Female
  Weight: 57.5 kg

DRUGS (2)
  1. SOLIRIS [Suspect]
     Indication: PROPHYLAXIS AGAINST TRANSPLANT REJECTION
     Dosage: 1200 MG, SINGLE
     Route: 042
     Dates: start: 20101006, end: 20101006
  2. SOLIRIS [Suspect]
     Dosage: 900 MG, 5 TIMES
     Route: 042
     Dates: start: 20101007

REACTIONS (3)
  - ABDOMINAL DISCOMFORT [None]
  - MUSCULOSKELETAL DISCOMFORT [None]
  - POST PROCEDURAL HAEMORRHAGE [None]
